FAERS Safety Report 6826454-9 (Version None)
Quarter: 2010Q2

REPORT INFORMATION
  Report Type: 
  Country: None (occurrence: None)
  Receive Date: 20100606
  Receipt Date: 20090612
  Transmission Date: 20101027
  Serious: Yes (Life-Threatening)
  Sender: FDA-Public Use
  Company Number: 2009020347

PATIENT
  Sex: Male

DRUGS (2)
  1. HUMATE-P [Suspect]
     Indication: PROPHYLAXIS
     Dosage: NTRAVENOUS (NOTE OTHERWISE SPECIFIED)
     Route: 042
     Dates: start: 20090612, end: 20090612
  2. HUMATE-P [Suspect]
     Indication: VON WILLEBRAND'S DISEASE
     Dosage: NTRAVENOUS (NOTE OTHERWISE SPECIFIED)
     Route: 042
     Dates: start: 20090612, end: 20090612

REACTIONS (3)
  - DYSPNOEA [None]
  - PHARYNGEAL OEDEMA [None]
  - PRURITUS [None]
